FAERS Safety Report 9345017 (Version 1)
Quarter: 2013Q2

REPORT INFORMATION
  Report Type: Spontaneous
  Country: MA (occurrence: MA)
  Receive Date: 20130612
  Receipt Date: 20130612
  Transmission Date: 20140414
  Serious: Yes (Other)
  Sender: FDA-Public Use
  Company Number: MA-PERRIGO-13MA006151

PATIENT
  Age: 74 Year
  Sex: Female

DRUGS (1)
  1. CLOBETASOL PROPIONATE [Suspect]
     Indication: PEMPHIGOID
     Dosage: UNK, UNK
     Route: 061

REACTIONS (2)
  - Kaposi^s sarcoma [Recovered/Resolved]
  - Incorrect drug administration duration [Recovered/Resolved]
